FAERS Safety Report 7535830-0 (Version None)
Quarter: 2011Q2

REPORT INFORMATION
  Report Type: 
  Country: None (occurrence: None)
  Receive Date: 20110602
  Receipt Date: 20110523
  Transmission Date: 20111010
  Serious: Yes (Death, Hospitalization)
  Sender: FDA-Public Use
  Company Number: 2010AC000022

PATIENT
  Age: 53 Year
  Sex: Male
  Weight: 24.4942 kg

DRUGS (17)
  1. POTASSIUM CHLORIDE [Concomitant]
  2. FUROSEMIDE [Concomitant]
  3. ASPIRIN [Concomitant]
  4. PERCOCET [Concomitant]
  5. CIPROFLOXACIN HCL [Concomitant]
  6. NOREPINEPHRINE BITARTRATE [Concomitant]
  7. VANCOMYCIN [Concomitant]
  8. HYDROCORTISONE [Concomitant]
  9. FENTANYL-100 [Concomitant]
  10. WARFARIN SODIUM [Concomitant]
  11. ZITHROMAX [Concomitant]
  12. DIGOXIN [Suspect]
     Dosage: 0.25 MG;QD;PO
     Dates: start: 20060822, end: 20080101
  13. ATORVASTATIN [Concomitant]
  14. TEGRETOL [Concomitant]
  15. NEURONTIN [Concomitant]
  16. FIORICET [Concomitant]
  17. CEFEPIME [Concomitant]

REACTIONS (25)
  - SEPSIS [None]
  - CHRONIC OBSTRUCTIVE PULMONARY DISEASE [None]
  - ATELECTASIS [None]
  - ABSCESS JAW [None]
  - HYPOTENSION [None]
  - SQUAMOUS CELL CARCINOMA [None]
  - CACHEXIA [None]
  - ELECTROCARDIOGRAM T WAVE ABNORMAL [None]
  - INTERNATIONAL NORMALISED RATIO INCREASED [None]
  - AORTIC ARTERIOSCLEROSIS [None]
  - EYELID PTOSIS [None]
  - MULTIPLE INJURIES [None]
  - MOUTH HAEMORRHAGE [None]
  - PNEUMONIA [None]
  - SINUS TACHYCARDIA [None]
  - NEUTROPENIA [None]
  - CARDIOACTIVE DRUG LEVEL BELOW THERAPEUTIC [None]
  - RESPIRATORY DISTRESS [None]
  - DYSPHAGIA [None]
  - PHANTOM PAIN [None]
  - HEADACHE [None]
  - MALIGNANT NEOPLASM OF ORBIT [None]
  - EPISTAXIS [None]
  - HYPOKALAEMIA [None]
  - PAIN [None]
